FAERS Safety Report 4965812-4 (Version None)
Quarter: 2006Q2

REPORT INFORMATION
  Report Type: 
  Country: None (occurrence: None)
  Receive Date: 20060406
  Receipt Date: 20060406
  Transmission Date: 20061013
  Serious: Yes (Hospitalization)
  Sender: FDA-Public Use
  Company Number: None

PATIENT
  Sex: Female
  Weight: 79.8 kg

DRUGS (11)
  1. GLIADEL [Suspect]
     Indication: GLIOBLASTOMA MULTIFORME
     Dosage: 7.7 MG PER WAFER- MAX OF 8
     Dates: start: 20060317
  2. O6-BENZYLGUANINE (O6BG) [Suspect]
     Indication: GLIOBLASTOMA MULTIFORME
     Dosage: 30 MH/M2 INFUSION X 5 DAYS
     Dates: start: 20060317, end: 20060322
  3. DILANTIN [Concomitant]
  4. DECADRON [Concomitant]
  5. PEPCID [Concomitant]
  6. METAMUCIL [Concomitant]
  7. MAGNESIUM [Concomitant]
  8. EFFEXOR [Concomitant]
  9. ASPIRIN [Concomitant]
  10. ADVIL [Concomitant]
  11. MELALONIN [Concomitant]

REACTIONS (4)
  - BACTERIAL INFECTION [None]
  - CSF BACTERIA IDENTIFIED [None]
  - POSTOPERATIVE FEVER [None]
  - VOMITING [None]
